FAERS Safety Report 5309005-X (Version None)
Quarter: 2007Q2

REPORT INFORMATION
  Report Type: 
  Country: None (occurrence: None)
  Receive Date: 20070420
  Receipt Date: 20070411
  Transmission Date: 20071010
  Serious: Yes (Hospitalization)
  Sender: FDA-Public Use
  Company Number: GXKR2007GB03414

PATIENT
  Age: 54 Year
  Sex: Male

DRUGS (2)
  1. LEVOTHYROXINE SODIUM [Suspect]
     Indication: HYPOTHYROIDISM
     Dosage: 25 UG, QD, UNK
  2. SIMVASTATIN [Suspect]
     Dosage: 20 MG, QD, UNK

REACTIONS (9)
  - ABASIA [None]
  - BLOOD CREATINE INCREASED [None]
  - COMPARTMENT SYNDROME [None]
  - FASCIOTOMY [None]
  - MUSCLE NECROSIS [None]
  - MYALGIA [None]
  - OEDEMA PERIPHERAL [None]
  - PAIN IN EXTREMITY [None]
  - TENDERNESS [None]
